FAERS Safety Report 4322924-6 (Version None)
Quarter: 2004Q1

REPORT INFORMATION
  Report Type: 
  Country: None (occurrence: None)
  Receive Date: 20040322
  Receipt Date: 20040112
  Transmission Date: 20041129
  Serious: Yes (Other)
  Sender: FDA-Public Use
  Company Number: PHEH2004US00802

PATIENT
  Age: 70 Year
  Sex: Female

DRUGS (5)
  1. ZOMETA [Suspect]
     Indication: MULTIPLE MYELOMA
     Dosage: 4 MG MONTHLY, INTRAVENOUS
     Route: 042
     Dates: start: 20020701, end: 20031215
  2. COZAAR [Concomitant]
  3. INSULIN [Concomitant]
  4. WARFARIN SODIUM [Concomitant]
  5. LANOXIN [Concomitant]

REACTIONS (2)
  - BLOOD CREATININE INCREASED [None]
  - FALL [None]
